FAERS Safety Report 12067353 (Version 4)
Quarter: 2019Q3

REPORT INFORMATION
  Report Type: Spontaneous
  Country: US (occurrence: US)
  Receive Date: 20160211
  Receipt Date: 20190824
  Transmission Date: 20191004
  Serious: Yes (Death, Other)
  Sender: FDA-Public Use
  Company Number: US-009507513-1602USA004010

PATIENT
  Age: 1 Day
  Sex: Male
  Weight: 1.63 kg

DRUGS (7)
  1. RETROVIR [Suspect]
     Active Substance: ZIDOVUDINE
     Dosage: FIRST COURSE; DOSE: 1 MG/KG/HOUR; WEEK BEGAN/WEEK ENDED: 33
     Route: 064
     Dates: start: 20151210, end: 20151210
  2. TRUVADA [Suspect]
     Active Substance: EMTRICITABINE\TENOFOVIR DISOPROXIL FUMARATE
     Dosage: 1 DOSAGE FORM, QD
     Route: 064
     Dates: end: 20150911
  3. EPIVIR [Suspect]
     Active Substance: LAMIVUDINE
     Dosage: 1 DOSAGE FORM, QD
     Route: 064
     Dates: start: 20150911
  4. INTELENCE [Suspect]
     Active Substance: ETRAVIRINE
     Dosage: 1 DOSAGE FORM, QD
     Route: 064
     Dates: start: 20151127
  5. RETROVIR [Suspect]
     Active Substance: ZIDOVUDINE
     Dosage: SECOND COURSE; DOSE: 1 MG/KG/HOUR; WEEK BEGAN/WEEK ENDED: 33
     Route: 064
     Dates: start: 20151210, end: 20151210
  6. ISENTRESS [Suspect]
     Active Substance: RALTEGRAVIR POTASSIUM
     Dosage: 800 MILLIGRAM, QD
     Route: 064
  7. VIREAD [Suspect]
     Active Substance: TENOFOVIR DISOPROXIL FUMARATE
     Dosage: 1 DOSAGE FORM, QD
     Route: 064
     Dates: start: 20150911

REACTIONS (4)
  - Premature baby [Recovered/Resolved]
  - Death neonatal [Fatal]
  - Small for dates baby [Unknown]
  - Foetal exposure during pregnancy [Recovered/Resolved]

NARRATIVE: CASE EVENT DATE: 20151210
